FAERS Safety Report 10627550 (Version 1)
Quarter: 2014Q4

REPORT INFORMATION
  Report Type: Spontaneous
  Country: BR (occurrence: BR)
  Receive Date: 20141205
  Receipt Date: 20141205
  Transmission Date: 20150529
  Serious: Yes (Hospitalization)
  Sender: FDA-Public Use
  Company Number: BR-ROCHE-1502569

PATIENT
  Sex: Female

DRUGS (3)
  1. MAREVAN [Concomitant]
     Active Substance: WARFARIN SODIUM
  2. ACTILYSE [Suspect]
     Active Substance: ALTEPLASE
     Indication: PULMONARY EMBOLISM
     Dosage: LYOPHILIZED POWDER
     Route: 065
     Dates: start: 20141109
  3. ACTILYSE [Suspect]
     Active Substance: ALTEPLASE
     Route: 065
     Dates: start: 20141119

REACTIONS (1)
  - Pneumonia [Unknown]
